FAERS Safety Report 4832734-9 (Version None)
Quarter: 2005Q4

REPORT INFORMATION
  Report Type: 
  Country: None (occurrence: None)
  Receive Date: 20051117
  Receipt Date: 20051117
  Transmission Date: 20060501
  Serious: Yes (Other)
  Sender: FDA-Public Use
  Company Number: None

PATIENT
  Age: 33 Year
  Sex: Female
  Weight: 81.6475 kg

DRUGS (1)
  1. ZITHROMAX [Suspect]
     Indication: SINUSITIS
     Dosage: 250 MG   ONCE A DAY   BUCCAL
     Route: 002
     Dates: start: 20051111, end: 20051115

REACTIONS (2)
  - MYALGIA [None]
  - PAIN IN EXTREMITY [None]
